FAERS Safety Report 6760204-X (Version None)
Quarter: 2010Q2

REPORT INFORMATION
  Report Type: 
  Country: None (occurrence: None)
  Receive Date: 20100608
  Receipt Date: 19991025
  Transmission Date: 20101027
  Serious: No
  Sender: FDA-Public Use
  Company Number: 1999SUS1247

PATIENT
  Age: 23 Year
  Sex: Female

DRUGS (5)
  1. SUSTIVA [Suspect]
     Indication: HIV INFECTION
     Dosage: 600 MG AES#DOSE_FREQUENCY: DLY
     Route: 048
  2. NELFINAVIR [Concomitant]
     Dosage: 2500 MG AES#DOSE_FREQUENCY: DLY
     Route: 048
  3. ABACAVIR SULFATE [Concomitant]
     Dosage: 600 MG AES#DOSE_FREQUENCY: DLY
     Route: 048
  4. COMBIVIR [Concomitant]
     Dosage: 2 TAB AES#DOSE_FREQUENCY: DLY
     Route: 048
  5. NEVIRAPINE [Concomitant]
     Dosage: 400 MG AES#DOSE_FREQUENCY: DLY
     Route: 048

REACTIONS (2)
  - PREGNANCY [None]
  - TWIN PREGNANCY [None]
